FAERS Safety Report 10663402 (Version 1)
Quarter: 2014Q4

REPORT INFORMATION
  Report Type: Spontaneous
  Country: US (occurrence: US)
  Receive Date: 20141218
  Receipt Date: 20141218
  Transmission Date: 20150529
  Serious: No
  Sender: FDA-Public Use
  Company Number: US-B.I. PHARMACEUTICALS,INC./RIDGEFIELD-2014-BI-59926BP

PATIENT
  Age: 60 Year
  Sex: Female
  Weight: 54.43 kg

DRUGS (7)
  1. GILOTRIF [Suspect]
     Active Substance: AFATINIB
     Dosage: 30 MG
     Route: 048
     Dates: start: 20141204
  2. ZOFRAN [Concomitant]
     Active Substance: ONDANSETRON HYDROCHLORIDE
     Indication: NAUSEA
     Dosage: 4 MG
     Route: 048
     Dates: start: 20141114
  3. MUCINEX [Concomitant]
     Active Substance: GUAIFENESIN
     Indication: SECRETION DISCHARGE
     Dosage: 2400 MG
     Route: 048
     Dates: start: 20141114
  4. LOPRESSOR [Concomitant]
     Active Substance: METOPROLOL TARTRATE
     Indication: CARDIAC DISORDER
     Dosage: 50 MG
     Route: 048
     Dates: start: 20141101
  5. BAYER ASPIRIN [Concomitant]
     Active Substance: ASPIRIN
     Indication: PRODUCT USED FOR UNKNOWN INDICATION
     Dosage: 81 MG
     Route: 048
     Dates: start: 20141101
  6. GILOTRIF [Suspect]
     Active Substance: AFATINIB
     Indication: LUNG NEOPLASM MALIGNANT
     Dosage: 40 MG
     Route: 048
     Dates: start: 20141118, end: 20141124
  7. PROBIOTIC [Concomitant]
     Active Substance: PROBIOTICS NOS
     Indication: PROPHYLAXIS
     Dosage: 2 ANZ
     Route: 048
     Dates: start: 20141114

REACTIONS (6)
  - Diarrhoea [Recovered/Resolved]
  - Stomatitis [Recovered/Resolved]
  - Lip pain [Recovered/Resolved]
  - Rash [Recovered/Resolved]
  - Dry skin [Not Recovered/Not Resolved]
  - Joint swelling [Not Recovered/Not Resolved]

NARRATIVE: CASE EVENT DATE: 20141121
